FAERS Safety Report 13647258 (Version 1)
Quarter: 2017Q2

REPORT INFORMATION
  Report Type: Spontaneous
  Country: US (occurrence: US)
  Receive Date: 20170613
  Receipt Date: 20170613
  Transmission Date: 20170830
  Serious: Yes (Disabling)
  Sender: FDA-Public Use
  Company Number: None

PATIENT
  Age: 70 Year
  Sex: Female
  Weight: 132.3 kg

DRUGS (13)
  1. METOPROLOL. [Concomitant]
     Active Substance: METOPROLOL
  2. ECHINACEA [Concomitant]
     Active Substance: ECHINACEA, UNSPECIFIED
  3. TRULICITY [Suspect]
     Active Substance: DULAGLUTIDE
     Indication: TYPE 2 DIABETES MELLITUS
     Route: 058
     Dates: start: 20170513, end: 20170608
  4. LISINIPROL [Concomitant]
  5. CRANBERRY. [Concomitant]
     Active Substance: CRANBERRY
  6. PROAIR HFA [Concomitant]
     Active Substance: ALBUTEROL SULFATE
  7. GARLIC. [Concomitant]
     Active Substance: GARLIC
  8. TYLENOL [Concomitant]
     Active Substance: ACETAMINOPHEN
  9. FUROSEMIDE. [Concomitant]
     Active Substance: FUROSEMIDE
  10. AMLODAPINE [Concomitant]
  11. GLUCOSAMINE/CHONDROITIN /08437701/ [Concomitant]
     Active Substance: CHONDROITIN SULFATE (BOVINE)\GLUCOSAMINE SULFATE
  12. VITAMIN D [Concomitant]
     Active Substance: CHOLECALCIFEROL
  13. MULTI-VITAMIN [Concomitant]
     Active Substance: .ALPHA.-TOCOPHEROL ACETATE, DL-\ASCORBIC ACID\CYANOCOBALAMIN\FLUORIDE ION\FOLIC ACID\NIACIN\PYRIDOXINE\RIBOFLAVIN\THIAMINE\VITAMIN A\VITAMIN D

REACTIONS (4)
  - Condition aggravated [None]
  - Heart rate increased [None]
  - Heart rate irregular [None]
  - Arthralgia [None]

NARRATIVE: CASE EVENT DATE: 20170612
